FAERS Safety Report 6007221-5 (Version None)
Quarter: 2008Q4

REPORT INFORMATION
  Report Type: 
  Country: None (occurrence: None)
  Receive Date: 20081217
  Receipt Date: 20080324
  Transmission Date: 20090506
  Serious: No
  Sender: FDA-Public Use
  Company Number: US-ASTRAZENECA-2008UW02991

PATIENT
  Age: 65 Year
  Sex: Male
  Weight: 86.2 kg

DRUGS (5)
  1. CRESTOR [Suspect]
     Indication: BLOOD CHOLESTEROL INCREASED
     Route: 048
  2. CRESTOR [Suspect]
     Route: 048
     Dates: start: 20080801
  3. LOTREL [Concomitant]
     Dosage: 5/20
  4. PREVACID [Concomitant]
  5. PRILOSEC [Concomitant]

REACTIONS (1)
  - BLOOD CHOLESTEROL INCREASED [None]
